FAERS Safety Report 4658180-9 (Version None)
Quarter: 2005Q2

REPORT INFORMATION
  Report Type: 
  Country: None (occurrence: None)
  Receive Date: 20050504
  Receipt Date: 20040915
  Transmission Date: 20051028
  Serious: Yes (Other)
  Sender: FDA-Public Use
  Company Number: PHEH2004US10144

PATIENT

DRUGS (1)
  1. DIOVAN HCT [Suspect]
     Dosage: ORAL
     Route: 048

REACTIONS (1)
  - BLOOD SODIUM DECREASED [None]
